FAERS Safety Report 5091540-3 (Version None)
Quarter: 2006Q3

REPORT INFORMATION
  Report Type: 
  Country: None (occurrence: None)
  Receive Date: 20060824
  Receipt Date: 20060816
  Transmission Date: 20061208
  Serious: Yes (Hospitalization)
  Sender: FDA-Public Use
  Company Number: 163-20785-06060321

PATIENT
  Age: 67 Year
  Sex: Female

DRUGS (14)
  1. THALOMID [Suspect]
     Indication: MULTIPLE MYELOMA
     Dosage: SEE IMAGE
     Route: 048
     Dates: start: 20060520, end: 20060528
  2. THALOMID [Suspect]
     Indication: MULTIPLE MYELOMA
     Dosage: SEE IMAGE
     Route: 048
     Dates: start: 20060505
  3. THALOMID [Suspect]
     Indication: MULTIPLE MYELOMA
     Dosage: SEE IMAGE
     Route: 048
     Dates: start: 20060613
  4. COUMADIN [Concomitant]
  5. ISOSORBIDE (ISOSORBIDE) [Concomitant]
  6. CARVEDILOL [Concomitant]
  7. HYDRALAZINE HCL [Concomitant]
  8. DIGOXIN [Concomitant]
  9. METOPROPAMIDE [Concomitant]
  10. ALLOPURINOL [Concomitant]
  11. METRONIDAZOLE [Concomitant]
  12. INSULIN [Concomitant]
  13. MORPHINE [Concomitant]
  14. METODORPAMIDE [Concomitant]

REACTIONS (5)
  - CELLULITIS [None]
  - HAEMATOMA [None]
  - PANNICULITIS [None]
  - RASH [None]
  - TREATMENT NONCOMPLIANCE [None]
